FAERS Safety Report 8624236-9 (Version None)
Quarter: 2012Q3

REPORT INFORMATION
  Report Type: 
  Country: None (occurrence: None)
  Receive Date: 20120827
  Receipt Date: 20120824
  Transmission Date: 20120928
  Serious: Yes (Death)
  Sender: FDA-Public Use
  Company Number: BE-B.I. PHARMACEUTICALS,INC./RIDGEFIELD-2012-BL-00477BL

PATIENT
  Age: 78 Year

DRUGS (1)
  1. PRADAXA [Suspect]

REACTIONS (1)
  - HAEMORRHAGE [None]
